FAERS Safety Report 10284006 (Version 1)
Quarter: 2014Q3

REPORT INFORMATION
  Report Type: Spontaneous
  Country: US (occurrence: US)
  Receive Date: 20140708
  Receipt Date: 20140708
  Transmission Date: 20150326
  Serious: No
  Sender: FDA-Public Use
  Company Number: US-GLAXOSMITHKLINE-A1069622A

PATIENT
  Age: 46 Year
  Sex: Female
  Weight: 82.3 kg

DRUGS (2)
  1. POTIGA [Suspect]
     Active Substance: EZOGABINE
     Indication: CONVULSION
     Dosage: 200MG THREE TIMES PER DAY
     Route: 048
     Dates: start: 201303
  2. OMEPRAZOLE. [Concomitant]
     Active Substance: OMEPRAZOLE
     Indication: GASTROOESOPHAGEAL REFLUX DISEASE

REACTIONS (6)
  - Visual impairment [Not Recovered/Not Resolved]
  - Retinal disorder [Not Recovered/Not Resolved]
  - Dry eye [Not Recovered/Not Resolved]
  - Vision blurred [Not Recovered/Not Resolved]
  - Maculopathy [Not Recovered/Not Resolved]
  - Optical coherence tomography abnormal [Not Recovered/Not Resolved]

NARRATIVE: CASE EVENT DATE: 20131216
